FAERS Safety Report 11616612 (Version 1)
Quarter: 2015Q4

REPORT INFORMATION
  Report Type: Report from Study
  Country: BR (occurrence: BR)
  Receive Date: 20151009
  Receipt Date: 20151009
  Transmission Date: 20160304
  Serious: Yes (Other)
  Sender: FDA-Public Use
  Company Number: BR-ABBVIE-13P-020-1132456-00

PATIENT
  Age: 39 Year
  Sex: Male
  Weight: 64 kg

DRUGS (2)
  1. MALTODEXTRIN + POTASSIUM CASEINATE + ASSOCIATIONS (MODULEN) [Concomitant]
     Indication: ENTERAL NUTRITION
  2. HUMIRA [Suspect]
     Active Substance: ADALIMUMAB
     Indication: CROHN^S DISEASE
     Route: 058
     Dates: start: 20101201

REACTIONS (10)
  - Cardiac arrest [Recovered/Resolved]
  - Large intestine perforation [Unknown]
  - Gastric fistula [Unknown]
  - Intestinal fistula [Unknown]
  - Intestinal resection [Unknown]
  - Drug ineffective [Unknown]
  - Cardiac disorder [Unknown]
  - Skin ulcer [Unknown]
  - Post procedural complication [Unknown]
  - Crohn^s disease [Unknown]

NARRATIVE: CASE EVENT DATE: 2011
